FAERS Safety Report 8902539 (Version 1)
Quarter: 2012Q4

REPORT INFORMATION
  Report Type: 
  Country: DE (occurrence: DE)
  Receive Date: 20121112
  Receipt Date: 20121112
  Transmission Date: 20130627
  Serious: Yes (Death, Hospitalization, Other)
  Sender: FDA-Public Use
  Company Number: DE-ELI_LILLY_AND_COMPANY-DE201210009884

PATIENT
  Sex: Female

DRUGS (4)
  1. FORSTEO [Suspect]
     Indication: OSTEOPOROSIS
     Dosage: UNK
     Route: 058
     Dates: start: 20110614
  2. ANALGESICS [Concomitant]
  3. HCT [Concomitant]
  4. VITAMIN D [Concomitant]
     Dosage: UNK

REACTIONS (3)
  - Death [Fatal]
  - Pain [Unknown]
  - Pancreatic carcinoma [Unknown]
